FAERS Safety Report 16529334 (Version 2)
Quarter: 2019Q4

REPORT INFORMATION
  Report Type: Spontaneous
  Country: US (occurrence: US)
  Receive Date: 20190704
  Receipt Date: 20191002
  Transmission Date: 20200122
  Serious: No
  Sender: FDA-Public Use
  Company Number: US-GW PHARMA-201906USGW2111

PATIENT

DRUGS (4)
  1. EPIDIOLEX [Suspect]
     Active Substance: CANNABIDIOL
     Indication: IDIOPATHIC GENERALISED EPILEPSY
     Dosage: 15.3 MILLIGRAM/KILOGRAM, 180 MILLIGRAM, BID
     Route: 048
     Dates: start: 20190601, end: 2019
  2. EPIDIOLEX [Suspect]
     Active Substance: CANNABIDIOL
     Indication: EPILEPSY
     Dosage: 10.25 MILLIGRAM/KILOGRAM,120 MILLIGRAM, BID
     Route: 048
     Dates: start: 201906, end: 2019
  3. EPIDIOLEX [Suspect]
     Active Substance: CANNABIDIOL
     Indication: STATUS EPILEPTICUS
     Dosage: 5 MG/KG/DAY
     Route: 048
     Dates: start: 2019
  4. VIMPAT [Concomitant]
     Active Substance: LACOSAMIDE
     Indication: PRODUCT USED FOR UNKNOWN INDICATION
     Dosage: 50 MILLIGRAM, BID
     Route: 065

REACTIONS (3)
  - Initial insomnia [Unknown]
  - Seizure [Unknown]
  - Head banging [Unknown]

NARRATIVE: CASE EVENT DATE: 20190614
